FAERS Safety Report 5280384-5 (Version None)
Quarter: 2007Q1

REPORT INFORMATION
  Report Type: 
  Country: None (occurrence: None)
  Receive Date: 20070326
  Receipt Date: 20070326
  Transmission Date: 20070707
  Serious: Yes (Hospitalization)
  Sender: FDA-Public Use
  Company Number: None

PATIENT
  Age: 63 Year
  Sex: Male
  Weight: 79 kg

DRUGS (1)
  1. METRONIDAZOLE [Suspect]
     Dosage: 500 MG Q6H PO
     Route: 048

REACTIONS (7)
  - DIZZINESS [None]
  - DYSSTASIA [None]
  - FALL [None]
  - GAIT DISTURBANCE [None]
  - HYPOREFLEXIA [None]
  - NYSTAGMUS [None]
  - PUPILS UNEQUAL [None]
